FAERS Safety Report 9630585 (Version 1)
Quarter: 2013Q4

REPORT INFORMATION
  Report Type: Spontaneous
  Country: US (occurrence: None)
  Receive Date: 20131016
  Receipt Date: 20131016
  Transmission Date: 20140711
  Serious: Yes (Disabling)
  Sender: FDA-Public Use
  Company Number: None

PATIENT
  Age: 54 Year
  Sex: Female
  Weight: 72.58 kg

DRUGS (1)
  1. CRESTOR 20 MG ASTRAZENECA [Suspect]
     Indication: HYPERLIPIDAEMIA
     Dosage: ONE TABLET
     Route: 048
     Dates: start: 20031001, end: 20131015

REACTIONS (4)
  - Arthralgia [None]
  - Myalgia [None]
  - Movement disorder [None]
  - Asthenia [None]
